FAERS Safety Report 7139502-6 (Version None)
Quarter: 2010Q4

REPORT INFORMATION
  Report Type: 
  Country: None (occurrence: None)
  Receive Date: 20101206
  Receipt Date: 20101126
  Transmission Date: 20110411
  Serious: Yes (Disabling)
  Sender: FDA-Public Use
  Company Number: US-ABBOTT-10P-163-0688141-00

PATIENT
  Sex: Female
  Weight: 68.1 kg

DRUGS (3)
  1. LUPRON DEPOT [Suspect]
     Indication: ENDOMETRIOSIS
     Dates: start: 20021101, end: 20030301
  2. LUPRON DEPOT [Suspect]
     Indication: CYST RUPTURE
  3. HORMONE REPLACEMENT [Concomitant]
     Indication: HYSTERECTOMY
     Dates: start: 20060101

REACTIONS (12)
  - ABASIA [None]
  - APHASIA [None]
  - BACK PAIN [None]
  - BRAIN INJURY [None]
  - CONVULSION [None]
  - DRUG TOXICITY [None]
  - DYSPEPSIA [None]
  - INJECTION SITE PAIN [None]
  - MALAISE [None]
  - NECK PAIN [None]
  - URTICARIA [None]
  - WEIGHT DECREASED [None]
